FAERS Safety Report 5041800-7 (Version None)
Quarter: 2006Q2

REPORT INFORMATION
  Report Type: 
  Country: None (occurrence: None)
  Receive Date: 20060630
  Receipt Date: 20060510
  Transmission Date: 20061013
  Serious: Yes (Death, Life-Threatening, Other)
  Sender: FDA-Public Use
  Company Number: 200612407BWH

PATIENT
  Age: 74 Year
  Sex: Female
  Weight: 51.8 kg

DRUGS (38)
  1. TRASYLOL [Suspect]
     Indication: AORTIC VALVE REPLACEMENT
     Dosage: SEE IMAGE, INTRAVENOUS
     Route: 042
     Dates: start: 20040804
  2. PREOPERATIVE ANESTHESIA (ANAESTHETICS) [Suspect]
  3. PROTAMINE SULFATE [Suspect]
  4. SYNTHROID [Concomitant]
  5. LESCOL [Concomitant]
  6. DARVOCET [Concomitant]
  7. IRON SULFATETHIAMIN COMPOUND TAB [Concomitant]
  8. CALCIUM GLUCONATE [Concomitant]
  9. DIGOXIN [Concomitant]
  10. WARFARIN SODIUM [Concomitant]
  11. FOSAMAX [Concomitant]
  12. ASCORBIC ACID [Concomitant]
  13. HEPARIN [Concomitant]
  14. NEO SYNEPHRINE (PHENYLEPHRINE HYDROCHLORIDE) [Concomitant]
  15. ALBUMIN HUMAN [ALBUMEN] [Concomitant]
  16. NORMOSOL [Concomitant]
  17. MANNITOL [Concomitant]
  18. LASIX [Concomitant]
  19. PROTAMINE SULFATE [Concomitant]
  20. SONATA [Concomitant]
  21. ZITHROMAX [Concomitant]
  22. AMIODARONE HCL [Concomitant]
  23. VITAMINS [Concomitant]
  24. POTASSIUM CHLORIDE [Concomitant]
  25. VERSED [Concomitant]
  26. CEFAZOLIN [Concomitant]
  27. LACTATED RINGER'S [Concomitant]
  28. NORMAL SALINE [Concomitant]
  29. DOPAMINE [Concomitant]
  30. EPINEPHRINE [Concomitant]
  31. ZANTAC [Concomitant]
  32. SOLU-CORTEF [Concomitant]
  33. NACL [Concomitant]
  34. KANAMYCIN SULFATE [Concomitant]
  35. BENADRYL [Concomitant]
  36. INSULIN [Concomitant]
  37. SOLU-CORTEF [Concomitant]
  38. MAGNESIUM SULFATE [Concomitant]

REACTIONS (15)
  - ANAPHYLACTIC REACTION [None]
  - ATELECTASIS [None]
  - CARDIO-RESPIRATORY ARREST [None]
  - ENDOCARDITIS [None]
  - HYPOTENSION [None]
  - LUNG HYPERINFLATION [None]
  - METABOLIC ACIDOSIS [None]
  - OEDEMA [None]
  - ORGAN FAILURE [None]
  - POST PROCEDURAL COMPLICATION [None]
  - RESPIRATORY FAILURE [None]
  - VENTRICULAR FIBRILLATION [None]
  - VENTRICULAR HYPERTROPHY [None]
  - VENTRICULAR HYPOKINESIA [None]
  - WOUND SECRETION [None]
